FAERS Safety Report 7399114-6 (Version None)
Quarter: 2011Q1

REPORT INFORMATION
  Report Type: 
  Country: None (occurrence: None)
  Receive Date: 20110328
  Receipt Date: 20110317
  Transmission Date: 20110831
  Serious: Yes (Hospitalization)
  Sender: FDA-Public Use
  Company Number: 2011-0825

PATIENT
  Age: 68 Year
  Sex: Female

DRUGS (5)
  1. COMTAN [Concomitant]
  2. PRAMIPEXOLE DIHYDROCHLORIDE [Concomitant]
  3. L-DOPA (LEVODOPA) [Concomitant]
  4. APO-GO PFS (APO-GO) (APOMORPHINE HYDROCHLORIDE) [Suspect]
     Indication: PARKINSON'S DISEASE
     Dosage: NOT REPORTED (2 MG, CONTINUOUS INFUSION), SUBCUTANEOUS
     Route: 058
     Dates: start: 20110301, end: 20110302
  5. APO-GO PFS (APO-GO) (APOMORPHINE HYDROCHLORIDE) [Suspect]
     Indication: PARKINSON'S DISEASE
     Dosage: NOT REPORTED (2 MG, CONTINUOUS INFUSION), SUBCUTANEOUS
     Route: 058
     Dates: start: 20110302, end: 20110312

REACTIONS (5)
  - PALPITATIONS [None]
  - EXTRASYSTOLES [None]
  - BRADYCARDIA [None]
  - MEDICATION ERROR [None]
  - ARRHYTHMIA [None]
